FAERS Safety Report 5721407-6 (Version None)
Quarter: 2008Q2

REPORT INFORMATION
  Report Type: 
  Country: None (occurrence: None)
  Receive Date: 20080429
  Receipt Date: 20080425
  Transmission Date: 20081010
  Serious: Yes (Life-Threatening, Hospitalization)
  Sender: FDA-Public Use
  Company Number: FR-JNJFOC-20080301848

PATIENT
  Sex: Female
  Weight: 30 kg

DRUGS (5)
  1. RISPERDAL [Suspect]
     Indication: AGITATION
     Route: 048
  2. GALANTAMINE HYDROBROMIDE [Concomitant]
     Route: 048
  3. PREDNISONE [Concomitant]
     Indication: TEMPORAL ARTERITIS
     Route: 048
  4. SOTALOL HCL [Concomitant]
     Indication: HYPERTENSION
     Route: 048
  5. SPASMINE [Concomitant]
     Indication: INSOMNIA
     Route: 048

REACTIONS (13)
  - ABASIA [None]
  - ACCIDENTAL OVERDOSE [None]
  - AMYOTROPHY [None]
  - APHASIA [None]
  - DECUBITUS ULCER [None]
  - DRUG ADMINISTRATION ERROR [None]
  - DYSPNOEA [None]
  - EATING DISORDER [None]
  - FEEDING DISORDER [None]
  - SOMNOLENCE [None]
  - TACHYCARDIA [None]
  - UNRESPONSIVE TO STIMULI [None]
  - URINARY INCONTINENCE [None]
